FAERS Safety Report 21261859 (Version 3)
Quarter: 2025Q1

REPORT INFORMATION
  Report Type: Report from Study
  Country: MX (occurrence: MX)
  Receive Date: 20220827
  Receipt Date: 20250307
  Transmission Date: 20250408
  Serious: No
  Sender: NOVARTIS
  Company Number: MX-NOVARTISPH-NVSC2022MX156152

PATIENT
  Age: 83 Year
  Sex: Female
  Weight: 48 kg

DRUGS (18)
  1. ENTRESTO [Suspect]
     Active Substance: SACUBITRIL\VALSARTAN
     Indication: Mitral valve disease
     Dosage: 0.5 DOSAGE FORM (100 MG), BID
     Route: 048
     Dates: start: 202111, end: 202202
  2. ENTRESTO [Suspect]
     Active Substance: SACUBITRIL\VALSARTAN
     Indication: Pulmonary hypertension
     Dosage: 0.5 DOSAGE FORM, BID (200MG IN FOURTHS, AND TAKES ? TABLET EVERY 12 HOURS)
     Route: 048
     Dates: start: 202201
  3. ENTRESTO [Suspect]
     Active Substance: SACUBITRIL\VALSARTAN
     Dosage: 0.25 DOSAGE FORM, BID (200MG IN FOURTHS, AND TAKES ? TABLET EVERY 12 HOURS)
     Route: 048
     Dates: start: 202202
  4. ENTRESTO [Suspect]
     Active Substance: SACUBITRIL\VALSARTAN
     Dosage: 0.25 DOSAGE FORM (200 MG), BID
     Route: 048
     Dates: start: 20220119
  5. ENTRESTO [Suspect]
     Active Substance: SACUBITRIL\VALSARTAN
     Dosage: 1 DOSAGE FORM (50 MG), BID
     Route: 048
     Dates: start: 2023
  6. ENTRESTO [Suspect]
     Active Substance: SACUBITRIL\VALSARTAN
     Dosage: 0.5 DOSAGE FORM (100 MG), BID
     Route: 048
  7. CLOPIDOGREL [Suspect]
     Active Substance: CLOPIDOGREL BISULFATE
     Indication: Product used for unknown indication
     Dosage: 0.5 DOSAGE FORM, QD (EVERY 24 HOURS IN THE MORNING)
     Route: 048
     Dates: start: 20220119
  8. BISOPROLOL [Concomitant]
     Active Substance: BISOPROLOL
     Indication: Product used for unknown indication
     Dosage: 0.5 DOSAGE FORM, QD (5MG) (TABLET)) (EVERY 24 HOURS BY NIGHT)
     Route: 048
     Dates: start: 20220219
  9. FUROSEMIDE [Concomitant]
     Active Substance: FUROSEMIDE
     Indication: Product used for unknown indication
     Route: 048
     Dates: start: 20220216
  10. FUROSEMIDE [Concomitant]
     Active Substance: FUROSEMIDE
     Dosage: 1 DOSAGE FORM, QD (40 MG) (TABLET) (ONE IN THE MORNING )
     Route: 048
  11. SPIRONOLACTONE [Concomitant]
     Active Substance: SPIRONOLACTONE
     Indication: Product used for unknown indication
     Dosage: 1 DOSAGE FORM, QD (EVERY 24 HOURS BY MORNING)
     Route: 048
     Dates: start: 20220119
  12. SPIRONOLACTONE [Concomitant]
     Active Substance: SPIRONOLACTONE
     Dosage: 1 DOSAGE FORM (25MG), QD (TABLET))
     Route: 048
     Dates: start: 2023
  13. SERTRALINE [Concomitant]
     Active Substance: SERTRALINE HYDROCHLORIDE
     Indication: Product used for unknown indication
     Dosage: 0.5 DOSAGE FORM, (50 MG) QD TABLET (EVERY 24 HOURS IN THE MORNING)
     Route: 048
     Dates: start: 20220216
  14. SILDENAFIL CITRATE [Concomitant]
     Active Substance: SILDENAFIL CITRATE
     Indication: Erectile dysfunction
     Dosage: 0.5 DOSAGE FORM (50 MG), BID (TABLET)
     Route: 048
     Dates: start: 20220216
  15. RIVAROXABAN [Concomitant]
     Active Substance: RIVAROXABAN
     Indication: Pulmonary hypertension
     Dosage: 1 DOSAGE FORM (15 MG), QD (TABLET)
     Route: 048
     Dates: start: 2023
  16. RIVAROXABAN [Concomitant]
     Active Substance: RIVAROXABAN
     Indication: Mitral valve disease
  17. FOLIC ACID [Concomitant]
     Active Substance: FOLIC ACID
     Indication: Product used for unknown indication
     Dosage: 1 DOSAGE FORM (5 MG), QD (TABLET)
     Route: 048
     Dates: start: 2024
  18. METOPROLOL [Concomitant]
     Active Substance: METOPROLOL
     Indication: Product used for unknown indication
     Dosage: 1 DOSAGE FORM (100 MG), QD (TABLET))
     Route: 048
     Dates: start: 2023

REACTIONS (5)
  - Fatigue [Unknown]
  - Dyspnoea [Unknown]
  - Wrong technique in product usage process [Unknown]
  - Off label use [Unknown]
  - Anaemia [Unknown]

NARRATIVE: CASE EVENT DATE: 20211101
